FAERS Safety Report 6423601-8 (Version None)
Quarter: 2009Q4

REPORT INFORMATION
  Report Type: 
  Country: None (occurrence: None)
  Receive Date: 20091030
  Receipt Date: 20091030
  Transmission Date: 20100525
  Serious: Yes (Other)
  Sender: FDA-Public Use
  Company Number: None

PATIENT
  Age: 28 Year
  Sex: Male
  Weight: 81.6475 kg

DRUGS (1)
  1. MIXED AMPHETAMINE SALT ER GENERIC ADDERALL XR -BARR- [Suspect]
     Indication: ATTENTION DEFICIT/HYPERACTIVITY DISORDER
     Dosage: 40MG 1 PER DAY PO
     Route: 048
     Dates: start: 20090423, end: 20091029

REACTIONS (12)
  - ABNORMAL SENSATION IN EYE [None]
  - APATHY [None]
  - ARTHRALGIA [None]
  - DRUG INEFFECTIVE [None]
  - FORMICATION [None]
  - HEADACHE [None]
  - INCREASED APPETITE [None]
  - INSOMNIA [None]
  - MOOD SWINGS [None]
  - MUSCLE TWITCHING [None]
  - PARAESTHESIA [None]
  - PRODUCT SUBSTITUTION ISSUE [None]
